FAERS Safety Report 10286109 (Version 1)
Quarter: 2014Q3

REPORT INFORMATION
  Report Type: Report from Study
  Country: CA (occurrence: CA)
  Receive Date: 20140709
  Receipt Date: 20140709
  Transmission Date: 20150326
  Serious: Yes (Other)
  Sender: FDA-Public Use
  Company Number: CA-JNJFOC-20140701341

PATIENT

DRUGS (7)
  1. VITAMIN D [Concomitant]
     Active Substance: CHOLECALCIFEROL
     Route: 064
  2. IMURAN [Suspect]
     Active Substance: AZATHIOPRINE
     Indication: PRODUCT USED FOR UNKNOWN INDICATION
     Route: 064
  3. CALCIUM [Concomitant]
     Active Substance: CALCIUM
     Route: 064
  4. VITAMIN (PRENATAL) [Concomitant]
     Route: 064
  5. REMICADE [Suspect]
     Active Substance: INFLIXIMAB
     Indication: CROHN^S DISEASE
     Route: 064
     Dates: start: 20120921
  6. MULTIVIT [Concomitant]
     Active Substance: VITAMINS
     Route: 064
  7. REMICADE [Suspect]
     Active Substance: INFLIXIMAB
     Indication: CROHN^S DISEASE
     Route: 064
     Dates: start: 20120809

REACTIONS (2)
  - Foetal exposure during pregnancy [Recovered/Resolved]
  - Premature baby [Unknown]

NARRATIVE: CASE EVENT DATE: 20140605
